FAERS Safety Report 18584945 (Version 1)
Quarter: 2020Q4

REPORT INFORMATION
  Report Type: Spontaneous
  Country: US (occurrence: US)
  Receive Date: 20201207
  Receipt Date: 20201207
  Transmission Date: 20210114
  Serious: No
  Sender: FDA-Public Use
  Company Number: US-TEVA-2020-US-1856543

PATIENT
  Sex: Female
  Weight: 77 kg

DRUGS (13)
  1. PROGESTERONE 100 % POWDER [Concomitant]
  2. CHLORTHALIDONE 25 MG TABLET [Concomitant]
     Active Substance: CHLORTHALIDONE
  3. LORATADINE-D 10MG-240MG TAB ER 24H [Concomitant]
  4. PRILOSEC OTC 20 MG TABLET DR [Concomitant]
  5. VERAPAMIL ER 120 MG CAP24H PEL [Concomitant]
  6. PRAVASTATIN SODIUM 10 MG TABLET [Concomitant]
  7. CALCIUM + D3 200 MG-250 TABLET [Concomitant]
  8. ULTRAVATE 0.05 % LOTION [Concomitant]
  9. EFFEXOR XR 150 MG CAP.SR 24H [Concomitant]
  10. LAMOTRIGINE 100 % POWDER [Concomitant]
  11. MULTIVITAMINS CAPSULE [Concomitant]
  12. AUSTEDO [Suspect]
     Active Substance: DEUTETRABENAZINE
     Indication: HUNTINGTON^S DISEASE
     Dosage: 24 MILLIGRAM DAILY;
     Route: 048
     Dates: start: 201911
  13. AMINOBENZOATE POTASSIUM, [Concomitant]

REACTIONS (1)
  - Dry mouth [Not Recovered/Not Resolved]
